FAERS Safety Report 18462816 (Version 1)
Quarter: 2020Q4

REPORT INFORMATION
  Report Type: Spontaneous
  Country: NL (occurrence: PL)
  Receive Date: 20201104
  Receipt Date: 20201104
  Transmission Date: 20210114
  Serious: Yes (Other)
  Sender: FDA-Public Use
  Company Number: PL-FRESENIUS KABI-FK202011555

PATIENT
  Age: 65 Year
  Sex: Female

DRUGS (5)
  1. EXEMESTANE. [Suspect]
     Active Substance: EXEMESTANE
     Indication: PRODUCT USED FOR UNKNOWN INDICATION
     Dosage: 30 MG, QD
     Route: 065
  2. PACLITAXEL (MANUFACTURER UNKNOWN) [Suspect]
     Active Substance: PACLITAXEL
     Indication: BREAST CANCER
     Dosage: UNK
     Route: 065
  3. ANASTROZOLE. [Suspect]
     Active Substance: ANASTROZOLE
     Indication: PRODUCT USED FOR UNKNOWN INDICATION
     Dosage: 1 MG, QD
     Route: 065
  4. METFORMIN HYDROCHLORIDE. [Concomitant]
     Active Substance: METFORMIN HYDROCHLORIDE
     Indication: TYPE 2 DIABETES MELLITUS
     Dosage: UNK
     Route: 065
  5. VINORELBINE [Suspect]
     Active Substance: VINORELBINE TARTRATE
     Indication: PRODUCT USED FOR UNKNOWN INDICATION
     Dosage: UNK, Q2W
     Route: 048

REACTIONS (15)
  - Sciatica [Unknown]
  - Lymphadenopathy mediastinal [Unknown]
  - Pain [Unknown]
  - Asthenia [Unknown]
  - Metastases to liver [Unknown]
  - Diarrhoea [Unknown]
  - Disease progression [Unknown]
  - Cough [Unknown]
  - Neutropenia [Unknown]
  - Osteolysis [Unknown]
  - Metastases to bone [Unknown]
  - Metastases to lung [Unknown]
  - Hepatic enzyme increased [Unknown]
  - Alopecia [Unknown]
  - Peripheral sensory neuropathy [Unknown]
